FAERS Safety Report 10297074 (Version 1)
Quarter: 2014Q3

REPORT INFORMATION
  Report Type: Spontaneous
  Country: FR (occurrence: FR)
  Receive Date: 20140711
  Receipt Date: 20140711
  Transmission Date: 20150326
  Serious: Yes (Hospitalization)
  Sender: FDA-Public Use
  Company Number: 2013SP004381

PATIENT
  Age: 68 Year
  Sex: Male
  Weight: 90 kg

DRUGS (12)
  1. DEXAMETHASONE. [Suspect]
     Active Substance: DEXAMETHASONE
  2. RITUXIMAB [Concomitant]
     Active Substance: RITUXIMAB
     Dates: start: 20121003, end: 20121003
  3. SALMETEROL [Concomitant]
     Active Substance: SALMETEROL
     Route: 065
     Dates: start: 1980
  4. ZARZIO [Concomitant]
     Active Substance: FILGRASTIM
     Route: 065
     Dates: start: 20121008, end: 20121014
  5. ARACYTINE [Suspect]
     Active Substance: CYTARABINE
     Route: 042
     Dates: start: 20121004, end: 20121004
  6. BECLOMETASONE [Concomitant]
     Active Substance: BECLOMETHASONE DIPROPIONATE
     Route: 065
     Dates: start: 1980
  7. TEMSIROLIMUS [Suspect]
     Active Substance: TEMSIROLIMUS
     Route: 042
     Dates: start: 20121004, end: 20121004
  8. ZELITREX [Concomitant]
     Active Substance: VALACYCLOVIR HYDROCHLORIDE
     Indication: PROPHYLAXIS
     Route: 065
     Dates: start: 20121003
  9. NICARDIPINE [Concomitant]
     Active Substance: NICARDIPINE
     Route: 065
  10. ARACYTINE [Suspect]
     Active Substance: CYTARABINE
     Route: 042
     Dates: start: 20121005, end: 20121005
  11. SULFAMETHOXAZOLE [Concomitant]
     Active Substance: SULFAMETHOXAZOLE
     Indication: PROPHYLAXIS
     Route: 065
     Dates: start: 20121003
  12. LEDERFOLIN [Concomitant]
     Active Substance: LEUCOVORIN CALCIUM
     Indication: PROPHYLAXIS
     Route: 065
     Dates: start: 20121003

REACTIONS (4)
  - Pyrexia [Recovered/Resolved]
  - Thrombocytopenia [Recovered/Resolved]
  - Febrile neutropenia [Recovered/Resolved]
  - Mucosal inflammation [Unknown]

NARRATIVE: CASE EVENT DATE: 20121015
